FAERS Safety Report 15526477 (Version 2)
Quarter: 2018Q4

REPORT INFORMATION
  Report Type: Report from Study
  Country: US (occurrence: US)
  Receive Date: 20181018
  Receipt Date: 20181119
  Transmission Date: 20190205
  Serious: Yes (Death, Other)
  Sender: FDA-Public Use
  Company Number: US-GILEAD-2018-0369488

PATIENT
  Age: 63 Year
  Sex: Male

DRUGS (40)
  1. GABAPENTIN. [Concomitant]
     Active Substance: GABAPENTIN
  2. SIMVASTATIN. [Concomitant]
     Active Substance: SIMVASTATIN
  3. INSULIN [Concomitant]
     Active Substance: INSULIN NOS
  4. FLOLAN [Concomitant]
     Active Substance: EPOPROSTENOL SODIUM
  5. GLUCAGON RECOMBINANT [Concomitant]
     Active Substance: GLUCAGON
  6. MELATONIN [Concomitant]
     Active Substance: MELATONIN
  7. SODIUM CHLORIDE. [Concomitant]
     Active Substance: SODIUM CHLORIDE
  8. NOREPINEPHRINE. [Concomitant]
     Active Substance: NOREPINEPHRINE
  9. ATROPINE. [Concomitant]
     Active Substance: ATROPINE
  10. HYDRALAZINE [Concomitant]
     Active Substance: HYDRALAZINE HYDROCHLORIDE
  11. NICOTINE. [Concomitant]
     Active Substance: NICOTINE
  12. HYDROCORTISONE. [Concomitant]
     Active Substance: HYDROCORTISONE
  13. BUMETANIDE. [Concomitant]
     Active Substance: BUMETANIDE
  14. GLUCOSE 40% CLINTEC BENELUX [Concomitant]
  15. HYDROMORPHONE [Concomitant]
     Active Substance: HYDROMORPHONE
  16. OXYCODONE AND ACETAMINOPHEN [Concomitant]
     Active Substance: ACETAMINOPHEN\OXYCODONE HYDROCHLORIDE
  17. METOPROLOL SUCCINATE. [Concomitant]
     Active Substance: METOPROLOL SUCCINATE
  18. DOCUSATE SODIUM. [Concomitant]
     Active Substance: DOCUSATE SODIUM
  19. HEPARIN [Concomitant]
     Active Substance: HEPARIN SODIUM
  20. PHENYLEPHRINE [Concomitant]
     Active Substance: PHENYLEPHRINE\PHENYLEPHRINE HYDROCHLORIDE
  21. ADEMPAS [Concomitant]
     Active Substance: RIOCIGUAT
  22. ALPRAZOLAM. [Concomitant]
     Active Substance: ALPRAZOLAM
  23. ASPIRIN 81 [Concomitant]
     Active Substance: ASPIRIN
  24. PANTOPRAZOLE [Concomitant]
     Active Substance: PANTOPRAZOLE
  25. HUMAN ALBUMIN [Concomitant]
     Active Substance: ALBUMIN HUMAN
  26. DUONEB [Concomitant]
     Active Substance: ALBUTEROL SULFATE\IPRATROPIUM BROMIDE
  27. ONDANSETRON [Concomitant]
     Active Substance: ONDANSETRON
  28. ALDACTONE 50 HCT [Concomitant]
  29. FUROSEMIDE. [Concomitant]
     Active Substance: FUROSEMIDE
  30. OMEPRAZOLE. [Concomitant]
     Active Substance: OMEPRAZOLE
  31. CEFEPIME [Concomitant]
     Active Substance: CEFEPIME HYDROCHLORIDE
  32. POLYETHYLENE GLYCOL [Concomitant]
     Active Substance: POLYETHYLENE GLYCOLS
  33. ACETAMINOPHEN. [Concomitant]
     Active Substance: ACETAMINOPHEN
  34. NITROGLYCERIN. [Concomitant]
     Active Substance: NITROGLYCERIN
  35. PETROLATUM. [Concomitant]
     Active Substance: PETROLATUM
  36. AMBRISENTAN [Suspect]
     Active Substance: AMBRISENTAN
     Indication: PULMONARY HYPERTENSION
     Dosage: 10 MG, QD
     Route: 048
     Dates: start: 20171202, end: 20181013
  37. VASOPRESSIN. [Concomitant]
     Active Substance: VASOPRESSIN
  38. BISACODYL. [Concomitant]
     Active Substance: BISACODYL
  39. DEXTROSE. [Concomitant]
     Active Substance: DEXTROSE
  40. MORPHINE [Concomitant]
     Active Substance: MORPHINE

REACTIONS (1)
  - Death [Fatal]

NARRATIVE: CASE EVENT DATE: 20181013
